FAERS Safety Report 11245751 (Version 2)
Quarter: 2015Q3

REPORT INFORMATION
  Report Type: Report from Study
  Country: US (occurrence: US)
  Receive Date: 20150707
  Receipt Date: 20150727
  Transmission Date: 20151125
  Serious: Yes (Other)
  Sender: FDA-Public Use
  Company Number: US-GILEAD-2015-0161683

PATIENT
  Age: 81 Year
  Sex: Female

DRUGS (1)
  1. IDELALISIB [Suspect]
     Active Substance: IDELALISIB
     Indication: UNEVALUABLE EVENT
     Dosage: 150 MG, BID
     Route: 048
     Dates: start: 20141104

REACTIONS (1)
  - Neoplasm malignant [Unknown]
